FAERS Safety Report 9888653 (Version 2)
Quarter: 2014Q1

REPORT INFORMATION
  Report Type: Spontaneous
  Country: AR (occurrence: AR)
  Receive Date: 20140211
  Receipt Date: 20140211
  Transmission Date: 20141002
  Serious: Yes (Hospitalization)
  Sender: FDA-Public Use
  Company Number: AR-AMGEN-ARGSP2013059035

PATIENT
  Age: 51 Year
  Sex: Female

DRUGS (1)
  1. ENBREL [Suspect]
     Indication: RHEUMATOID ARTHRITIS
     Dosage: 50 MG, WEEKLY
     Route: 065
     Dates: start: 20110502

REACTIONS (7)
  - Salivary gland disorder [Not Recovered/Not Resolved]
  - Mass [Not Recovered/Not Resolved]
  - Cyst [Not Recovered/Not Resolved]
  - Inflammation [Not Recovered/Not Resolved]
  - Salivary gland cyst [Not Recovered/Not Resolved]
  - Thyroid cyst [Not Recovered/Not Resolved]
  - Parotitis [Not Recovered/Not Resolved]
